FAERS Safety Report 17900361 (Version 3)
Quarter: 2020Q4

REPORT INFORMATION
  Report Type: Spontaneous
  Country: US (occurrence: US)
  Receive Date: 20200616
  Receipt Date: 20201117
  Transmission Date: 20210113
  Serious: No
  Sender: FDA-Public Use
  Company Number: US-PFIZER INC-2020000581

PATIENT
  Age: 39 Year
  Sex: Female

DRUGS (1)
  1. LYRICA [Suspect]
     Active Substance: PREGABALIN
     Indication: FIBROMYALGIA
     Dosage: 50 MG, 3X/DAY (THREE TIMES A DAY)
     Route: 048

REACTIONS (4)
  - Hypersensitivity [Unknown]
  - Illness [Unknown]
  - Rhinorrhoea [Unknown]
  - Sneezing [Unknown]
